FAERS Safety Report 26007630 (Version 1)
Quarter: 2025Q4

REPORT INFORMATION
  Report Type: Spontaneous
  Country: US (occurrence: US)
  Receive Date: 20251106
  Receipt Date: 20251106
  Transmission Date: 20260118
  Serious: No
  Sender: MALLINCKRODT
  Company Number: US-MALLINCKRODT-MNK202506424

PATIENT
  Age: 44 Year
  Sex: Female
  Weight: 88 kg

DRUGS (30)
  1. CORTICOTROPIN [Suspect]
     Active Substance: CORTICOTROPIN
     Indication: Rheumatoid arthritis
     Route: 058
     Dates: start: 20250211
  2. CORTICOTROPIN [Suspect]
     Active Substance: CORTICOTROPIN
     Indication: Ankylosing spondylitis
  3. ESZOPICLONE [Concomitant]
     Active Substance: ESZOPICLONE
     Dosage: UNKNOWN
  4. ROPINIROLE [Concomitant]
     Active Substance: ROPINIROLE
     Dosage: UNKNOWN
  5. OXCARBAZEPINE [Concomitant]
     Active Substance: OXCARBAZEPINE
     Dosage: UNKNOWN
  6. SYMBICORT [Concomitant]
     Active Substance: BUDESONIDE\FORMOTEROL FUMARATE DIHYDRATE
     Dosage: UNKNOWN
  7. MOVANTIK [Concomitant]
     Active Substance: NALOXEGOL OXALATE
     Dosage: UNKNOWN
  8. FAMOTIDINE [Concomitant]
     Active Substance: FAMOTIDINE
     Dosage: UNKNOWN
  9. DULOXETINE [Concomitant]
     Active Substance: DULOXETINE
     Dosage: UNKNOWN
  10. TIZANIDINE [Concomitant]
     Active Substance: TIZANIDINE
     Dosage: UNKNOWN
  11. CLARITHROMYCIN [Concomitant]
     Active Substance: CLARITHROMYCIN
     Dosage: UNKNOWN
  12. DIPHENHYDRAMINE [Concomitant]
     Active Substance: DIPHENHYDRAMINE
     Dosage: UNKNOWN
  13. FERROUS SULFATE [Concomitant]
     Active Substance: FERROUS SULFATE
     Dosage: UNKNOWN
  14. MAGNESIUM [Concomitant]
     Active Substance: MAGNESIUM
     Dosage: UNKNOWN
  15. PROBIOTICS NOS [Concomitant]
     Active Substance: PROBIOTICS NOS
     Dosage: UNKNOWN
  16. REFRESH TEARS [Concomitant]
     Active Substance: CARBOXYMETHYLCELLULOSE SODIUM
     Dosage: UNKNOWN
  17. SENNA LEAF [Concomitant]
     Active Substance: SENNA LEAF
     Dosage: UNKNOWN
  18. TUMS [Concomitant]
     Active Substance: CALCIUM CARBONATE
     Dosage: UNKNOWN
  19. VITAMIN B12 [Concomitant]
     Active Substance: CYANOCOBALAMIN
     Dosage: UNKNOWN
  20. ONDANSETRON [Concomitant]
     Active Substance: ONDANSETRON
     Dosage: UNKNOWN
  21. VYEPTI [Concomitant]
     Active Substance: EPTINEZUMAB-JJMR
     Dosage: UNKNOWN
  22. VITAMIN D2 [Concomitant]
     Active Substance: ERGOCALCIFEROL
     Dosage: UNKNOWN
  23. VENTOLIN HFA [Concomitant]
     Active Substance: ALBUTEROL SULFATE
     Dosage: UNKNOWN
     Route: 055
  24. FOLIC ACID [Concomitant]
     Active Substance: FOLIC ACID
     Dosage: UNKNOWN
  25. GABAPENTIN [Concomitant]
     Active Substance: GABAPENTIN
     Dosage: UNKNOWN
  26. METOPROLOL SUCCINATE [Concomitant]
     Active Substance: METOPROLOL SUCCINATE
     Dosage: UNKNOWN
  27. OMEPRAZOLE [Concomitant]
     Active Substance: OMEPRAZOLE
     Dosage: UNKNOWN
  28. MIDODRINE [Concomitant]
     Active Substance: MIDODRINE
     Dosage: UNKNOWN
  29. EPINEPHRINE [Concomitant]
     Active Substance: EPINEPHRINE
     Dosage: UNKNOWN
  30. BUSPIRONE [Concomitant]
     Active Substance: BUSPIRONE HYDROCHLORIDE
     Dosage: UNKNOWN

REACTIONS (3)
  - Migraine [Not Recovered/Not Resolved]
  - Lacrimation increased [Not Recovered/Not Resolved]
  - Rhinorrhoea [Not Recovered/Not Resolved]

NARRATIVE: CASE EVENT DATE: 20250101
